FAERS Safety Report 4435598-0 (Version None)
Quarter: 2004Q3

REPORT INFORMATION
  Report Type: 
  Country: None (occurrence: None)
  Receive Date: 20040726
  Receipt Date: 20040505
  Transmission Date: 20050211
  Serious: No
  Sender: FDA-Public Use
  Company Number: USA040566685

PATIENT
  Sex: Female

DRUGS (1)
  1. FORTEO [Suspect]
     Dates: start: 20040503, end: 20040504

REACTIONS (4)
  - CHEST DISCOMFORT [None]
  - DISCOMFORT [None]
  - FEELING ABNORMAL [None]
  - TREMOR [None]
